FAERS Safety Report 7368939-5 (Version None)
Quarter: 2011Q1

REPORT INFORMATION
  Report Type: 
  Country: None (occurrence: None)
  Receive Date: 20110321
  Receipt Date: 20110321
  Transmission Date: 20110831
  Serious: Yes (Death, Hospitalization)
  Sender: FDA-Public Use
  Company Number: None

PATIENT
  Sex: Male
  Weight: 7.6 kg

DRUGS (4)
  1. MESNA [Suspect]
     Dosage: 183 MG
  2. DOXORUBICIN HCL [Suspect]
     Dosage: 11.6 MG
  3. VINCRISTINE SULFATE [Suspect]
     Dosage: .57 MG
  4. CYCLOPHOSPHAMIDE [Suspect]
     Dosage: 300 MG

REACTIONS (16)
  - HYPOPHAGIA [None]
  - TRANSAMINASES INCREASED [None]
  - METASTASES TO PERITONEUM [None]
  - ABDOMINAL DISTENSION [None]
  - VOMITING [None]
  - LETHARGY [None]
  - HEPATIC FUNCTION ABNORMAL [None]
  - PLEURAL EFFUSION [None]
  - HAEMOTHORAX [None]
  - DEHYDRATION [None]
  - COLLAPSE OF LUNG [None]
  - RESPIRATORY DISTRESS [None]
  - ASCITES [None]
  - OXYGEN SATURATION DECREASED [None]
  - GENERAL PHYSICAL HEALTH DETERIORATION [None]
  - METASTASES TO PLEURA [None]
